FAERS Safety Report 4280373-3 (Version None)
Quarter: 2004Q1

REPORT INFORMATION
  Report Type: 
  Country: None (occurrence: None)
  Receive Date: 20040127
  Receipt Date: 20040113
  Transmission Date: 20041129
  Serious: Yes (Disabling, Other)
  Sender: FDA-Public Use
  Company Number: 2004S1000146

PATIENT
  Sex: Male

DRUGS (1)
  1. DIPHENOXYLATE HYDROCHLORIDE W/ ATROPHINE SULFATE TAB [Suspect]
     Indication: IRRITABLE BOWEL SYNDROME
     Dates: start: 19970101, end: 20020311

REACTIONS (7)
  - BENIGN PROSTATIC HYPERPLASIA [None]
  - EXTRAOCULAR MUSCLE PARESIS [None]
  - EYE DISORDER [None]
  - EYE PAIN [None]
  - HEADACHE [None]
  - IMPAIRED WORK ABILITY [None]
  - VISION BLURRED [None]
